FAERS Safety Report 7710974-9 (Version None)
Quarter: 2011Q3

REPORT INFORMATION
  Report Type: 
  Country: None (occurrence: None)
  Receive Date: 20110825
  Receipt Date: 20110816
  Transmission Date: 20111222
  Serious: Yes (Other)
  Sender: FDA-Public Use
  Company Number: US-ASTRAZENECA-2011SE09657

PATIENT
  Age: 24 Year
  Sex: Male

DRUGS (3)
  1. NEXIUM [Suspect]
     Indication: GASTROOESOPHAGEAL REFLUX DISEASE
     Route: 048
  2. PRILOSEC OTC [Suspect]
     Dosage: DAILY
     Route: 048
  3. RANITIDINE [Concomitant]
     Route: 048

REACTIONS (10)
  - HAEMATEMESIS [None]
  - COUGH [None]
  - GASTROOESOPHAGEAL REFLUX DISEASE [None]
  - DYSPEPSIA [None]
  - DRUG DOSE OMISSION [None]
  - GASTRIC HAEMORRHAGE [None]
  - VOMITING [None]
  - HAEMOPTYSIS [None]
  - GASTRIC ULCER [None]
  - DRUG INEFFECTIVE [None]
